FAERS Safety Report 25592459 (Version 3)
Quarter: 2025Q3

REPORT INFORMATION
  Report Type: Spontaneous
  Country: CA (occurrence: CA)
  Receive Date: 20250722
  Receipt Date: 20250819
  Transmission Date: 20251021
  Serious: No
  Sender: PFIZER
  Company Number: CA-PFIZER INC-202500145479

PATIENT
  Age: 15 Year
  Sex: Male

DRUGS (6)
  1. ABRILADA [Suspect]
     Active Substance: ADALIMUMAB-AFZB
     Indication: Juvenile idiopathic arthritis
     Route: 058
     Dates: start: 20250416, end: 2025
  2. CELEBREX [Concomitant]
     Active Substance: CELECOXIB
  3. METHOTREXATE [Concomitant]
     Active Substance: METHOTREXATE
     Indication: Juvenile idiopathic arthritis
     Dosage: 20 MG, WEEKLY
     Route: 058
     Dates: start: 202501
  4. NAPROSYN [Concomitant]
     Active Substance: NAPROXEN
  5. FOLIC ACID [Concomitant]
     Active Substance: FOLIC ACID
  6. ONDANSETRON [Concomitant]
     Active Substance: ONDANSETRON

REACTIONS (1)
  - Injection site pain [Unknown]
